FAERS Safety Report 18697721 (Version 3)
Quarter: 2021Q1

REPORT INFORMATION
  Report Type: Spontaneous
  Country: US (occurrence: US)
  Receive Date: 20210105
  Receipt Date: 20210301
  Transmission Date: 20210419
  Serious: Yes (Other)
  Sender: FDA-Public Use
  Company Number: US-ASTRAZENECA-2020SF74178

PATIENT
  Age: 714 Month
  Sex: Female
  Weight: 95.3 kg

DRUGS (5)
  1. ACCOLATE [Concomitant]
     Active Substance: ZAFIRLUKAST
     Indication: HYPERSENSITIVITY
     Dosage: 20 MG 1 TIME IN MORNING AND 1 TIME IN AFTERNOON, START DATE WAS A LONGTIME AGO
     Route: 048
  2. LISINOPRIL  HCTZ [Concomitant]
     Active Substance: HYDROCHLOROTHIAZIDE\LISINOPRIL
     Indication: BLOOD PRESSURE ABNORMAL
     Dosage: 20?12.5 ONCE IN MORNING
     Route: 048
  3. XYZAL [Concomitant]
     Active Substance: LEVOCETIRIZINE DIHYDROCHLORIDE
     Indication: HYPERSENSITIVITY
     Dosage: 5 MG AT BEDTIME, START DATE WAS A LONG TIME AGO
     Route: 048
  4. NORVASC [Concomitant]
     Active Substance: AMLODIPINE BESYLATE
     Indication: BLOOD PRESSURE ABNORMAL
     Dosage: ONCE IN AFTERNOON, START DATE WAS UNKNOWN BUT IT WAS WHEN SHE WAS 30 SOMETHING YEARS OLD
     Route: 048
  5. FASENRA [Suspect]
     Active Substance: BENRALIZUMAB
     Indication: ASTHMA
     Dosage: 30.0MG UNKNOWN
     Route: 058
     Dates: start: 20200904

REACTIONS (5)
  - Product distribution issue [Unknown]
  - Product dose omission issue [Unknown]
  - COVID-19 [Unknown]
  - Inappropriate schedule of product administration [Unknown]
  - Asthma [Recovering/Resolving]

NARRATIVE: CASE EVENT DATE: 202101
